FAERS Safety Report 5622819-1 (Version None)
Quarter: 2008Q1

REPORT INFORMATION
  Report Type: 
  Country: None (occurrence: None)
  Receive Date: 20080212
  Receipt Date: 20080208
  Transmission Date: 20080703
  Serious: Yes (Other)
  Sender: FDA-Public Use
  Company Number: US-BRISTOL-MYERS SQUIBB COMPANY-14071617

PATIENT

DRUGS (2)
  1. ABILIFY [Suspect]
     Indication: BIPOLAR DISORDER
  2. LASIX [Concomitant]

REACTIONS (1)
  - RENAL FAILURE [None]
